FAERS Safety Report 18379710 (Version 1)
Quarter: 2020Q4

REPORT INFORMATION
  Report Type: Spontaneous
  Country: CO (occurrence: CO)
  Receive Date: 20201014
  Receipt Date: 20201014
  Transmission Date: 20210114
  Serious: No
  Sender: FDA-Public Use
  Company Number: CO-AMGEN-COLSP2020144600

PATIENT
  Age: 45 Year
  Sex: Female
  Weight: 60 kg

DRUGS (6)
  1. GEMCITABINE. [Concomitant]
     Active Substance: GEMCITABINE
     Indication: BREAST CANCER FEMALE
     Dosage: UNK
  2. NEULASTIM [Suspect]
     Active Substance: PEGFILGRASTIM
     Indication: PROPHYLAXIS
     Dosage: 6 MILLIGRAM, Q3WK
     Route: 058
     Dates: start: 20200618
  3. NEULASTIM [Suspect]
     Active Substance: PEGFILGRASTIM
     Dosage: 6 MILLIGRAM, Q3WK
     Route: 058
  4. PEMBROLIZUMAB. [Concomitant]
     Active Substance: PEMBROLIZUMAB
     Indication: BREAST CANCER FEMALE
     Dosage: UNK
  5. CARBOPLATIN. [Concomitant]
     Active Substance: CARBOPLATIN
     Indication: BREAST CANCER FEMALE
     Dosage: UNK
  6. NEULASTIM [Suspect]
     Active Substance: PEGFILGRASTIM
     Dosage: 6 MILLIGRAM, Q3WK
     Route: 058

REACTIONS (1)
  - Device electrical finding [Unknown]

NARRATIVE: CASE EVENT DATE: 20200901
